FAERS Safety Report 6327047-2 (Version None)
Quarter: 2009Q3

REPORT INFORMATION
  Report Type: 
  Country: None (occurrence: None)
  Receive Date: 20090825
  Receipt Date: 20090818
  Transmission Date: 20100115
  Serious: Yes (Other)
  Sender: FDA-Public Use
  Company Number: US-BAYER-200913195BCC

PATIENT
  Sex: Male
  Weight: 68 kg

DRUGS (1)
  1. ALEVE [Suspect]
     Indication: DRUG USE FOR UNKNOWN INDICATION
     Dosage: THE CONSUMER`S MOTHER SUSPECTED THAT HER SON INGESTED MORE THAN 6 ALEVES TABLETS.
     Route: 048
     Dates: start: 20090818, end: 20090818

REACTIONS (1)
  - SOMNOLENCE [None]
